FAERS Safety Report 6318915-6 (Version None)
Quarter: 2009Q3

REPORT INFORMATION
  Report Type: 
  Country: None (occurrence: None)
  Receive Date: 20090821
  Receipt Date: 20080922
  Transmission Date: 20100115
  Serious: No
  Sender: FDA-Public Use
  Company Number: US-ABBOTT-08P-163-0474309-00

PATIENT
  Sex: Female
  Weight: 124.85 kg

DRUGS (10)
  1. NIASPAN [Suspect]
     Indication: BLOOD CHOLESTEROL
     Route: 048
     Dates: start: 20080801
  2. LEVOTHYROXINE [Concomitant]
     Indication: HYPOTHYROIDISM
     Route: 048
  3. ASPIRIN [Concomitant]
     Indication: MIGRAINE
     Route: 048
  4. METFORMIN HYDROCHLORIDE [Concomitant]
     Indication: DRUG USE FOR UNKNOWN INDICATION
     Route: 048
  5. ATORVASTATIN CALCIUM [Concomitant]
     Indication: DRUG USE FOR UNKNOWN INDICATION
     Route: 048
  6. OLMESARTAN MEDOXOMIL [Concomitant]
     Indication: DRUG USE FOR UNKNOWN INDICATION
     Route: 048
  7. ZEBROM EYE DROPS [Concomitant]
     Indication: DRUG USE FOR UNKNOWN INDICATION
     Route: 047
  8. MULTIVITAMIN PACK [Concomitant]
     Indication: DRUG USE FOR UNKNOWN INDICATION
     Route: 048
  9. OTC FAMOTIDINE [Concomitant]
     Indication: GASTROOESOPHAGEAL REFLUX DISEASE
     Route: 048
  10. HCT TRYTOPHAN SUPPLEMENT [Concomitant]
     Indication: INSOMNIA
     Route: 048

REACTIONS (6)
  - HEADACHE [None]
  - HYPERAESTHESIA [None]
  - MIDDLE INSOMNIA [None]
  - PRURITUS [None]
  - RASH PAPULAR [None]
  - SKIN BURNING SENSATION [None]
